FAERS Safety Report 21208664 (Version 2)
Quarter: 2022Q4

REPORT INFORMATION
  Report Type: Spontaneous
  Country: IR (occurrence: IR)
  Receive Date: 20220812
  Receipt Date: 20221117
  Transmission Date: 20230113
  Serious: Yes (Life-Threatening, Hospitalization)
  Sender: FDA-Public Use
  Company Number: None

PATIENT
  Age: 4 Year
  Sex: Male

DRUGS (11)
  1. ETOPOSIDE [Suspect]
     Active Substance: ETOPOSIDE
     Indication: Acute myeloid leukaemia
     Dosage: 100 MILLIGRAM/SQ. METER, QD (FIRST COURSE: ON DAYS 1, 2, 3, 4)
     Route: 042
  2. ETOPOSIDE [Suspect]
     Active Substance: ETOPOSIDE
     Dosage: 100 MILLIGRAM/SQ. METER (CONSOLIDATION THERAPY: 60 MINUTE INFUSION ON DAYS 2, 3, 4, 5)
     Route: 042
  3. METHOTREXATE [Suspect]
     Active Substance: METHOTREXATE
     Indication: Acute myeloid leukaemia
     Dosage: UNK, RECEIVED FIRST, SECOND AND CONSOLIDATION THERAPY
     Route: 037
  4. CYTARABINE [Suspect]
     Active Substance: CYTARABINE
     Indication: Acute myeloid leukaemia
     Dosage: 200 MILLIGRAM/SQ. METER, QD (FIRST COURSE: ON DAYS 1, 2, 3, 4)
     Route: 042
  5. CYTARABINE [Suspect]
     Active Substance: CYTARABINE
     Dosage: 100 MILLIGRAM/SQ. METER, QD (SECOND COURSE: ON DAYS 1, 2, 3, 4, 5)
     Route: 042
  6. CYTARABINE [Suspect]
     Active Substance: CYTARABINE
     Dosage: 2 G/M2 CONSOLIDATION THERAPY: ON DAYS 1, 2, 3 (A TOTAL OF SIX DOSES)  , BID
     Route: 042
  7. IDARUBICIN [Suspect]
     Active Substance: IDARUBICIN
     Indication: Acute myeloid leukaemia
     Dosage: 12 MILLIGRAM/SQ. METER (FIRST COURSE: 4 HOUR INFUSION ON DAYS 2, 4, 6)
     Route: 042
  8. THIOGUANINE [Suspect]
     Active Substance: THIOGUANINE
     Indication: Acute myeloid leukaemia
     Dosage: 100 MILLIGRAM/SQ. METER (FIRST COURSE: ON DAYS 1, 2, 3, 4)
     Route: 048
  9. CYTARABINE [Suspect]
     Active Substance: CYTARABINE
     Indication: Acute myeloid leukaemia
     Dosage: RECEIVED FIRST, SECOND AND CONSOLIDATION THERAPY
     Route: 037
  10. HYDROCORTISONE [Suspect]
     Active Substance: HYDROCORTISONE
     Indication: Acute myeloid leukaemia
     Dosage: RECEIVED FIRST, SECOND AND CONSOLIDATION THERAPY
     Route: 037
  11. MITOXANTRONE [Suspect]
     Active Substance: MITOXANTRONE HYDROCHLORIDE
     Indication: Acute myeloid leukaemia
     Dosage: 10 MILLIGRAM/SQ. METER, SECOND COURSE: 30 MINUTE INFUSION ON DAYS 1, 2, 3
     Route: 042

REACTIONS (3)
  - Pericardial effusion [Recovering/Resolving]
  - Venoocclusive liver disease [Recovering/Resolving]
  - Thrombocytopenia [Recovering/Resolving]
